FAERS Safety Report 4337867-1 (Version None)
Quarter: 2004Q2

REPORT INFORMATION
  Report Type: 
  Country: None (occurrence: None)
  Receive Date: 20040412
  Receipt Date: 20040220
  Transmission Date: 20050107
  Serious: Yes (Hospitalization)
  Sender: FDA-Public Use
  Company Number: A03200400514

PATIENT
  Age: 76 Year
  Sex: Female

DRUGS (8)
  1. ARIXTRA [Suspect]
     Indication: THROMBOSIS PROPHYLAXIS
     Dosage: 2.5 MG QD - SUBCUTANEOUS
     Route: 058
     Dates: start: 20040112, end: 20040125
  2. ASPIRIN [Concomitant]
  3. ALPRAZOLAM [Concomitant]
  4. CLONAZEPAM [Concomitant]
  5. PAROXETINE HCL [Concomitant]
  6. CONJUGATED ESTROGEN [Concomitant]
  7. TOPIRMATE [Concomitant]
  8. NICARDIPINE HYDROCHLORIDE [Concomitant]

REACTIONS (1)
  - INJECTION SITE HAEMORRHAGE [None]
